FAERS Safety Report 8954058 (Version 1)
Quarter: 2012Q4

REPORT INFORMATION
  Report Type: 
  Country: BR (occurrence: BR)
  Receive Date: 20121207
  Receipt Date: 20121207
  Transmission Date: 20130627
  Serious: Yes (Hospitalization, Other)
  Sender: FDA-Public Use
  Company Number: BR-BRISTOL-MYERS SQUIBB COMPANY-17167669

PATIENT
  Age: 59 Year
  Sex: Female

DRUGS (4)
  1. ONGLYZA TABS 5 MG [Suspect]
     Indication: DIABETES MELLITUS
     Dosage: Initiated 2 yrs ago, resumed in Nov2012
     Route: 048
  2. METFORMIN [Concomitant]
     Indication: DIABETES MELLITUS
  3. GLIBENCLAMIDE [Concomitant]
     Indication: DIABETES MELLITUS
  4. ATENSINA [Concomitant]
     Indication: BLOOD PRESSURE

REACTIONS (3)
  - Arthropathy [Unknown]
  - Fall [Unknown]
  - Device dislocation [Unknown]
